FAERS Safety Report 18521421 (Version 1)
Quarter: 2020Q4

REPORT INFORMATION
  Report Type: Spontaneous
  Country: US (occurrence: US)
  Receive Date: 20201118
  Receipt Date: 20201118
  Transmission Date: 20210114
  Serious: Yes (Hospitalization)
  Sender: FDA-Public Use
  Company Number: None

PATIENT
  Age: 54 Year
  Sex: Female
  Weight: 80.3 kg

DRUGS (1)
  1. BOTOX [Suspect]
     Active Substance: ONABOTULINUMTOXINA

REACTIONS (8)
  - Eyelid ptosis [None]
  - Photophobia [None]
  - Throat tightness [None]
  - Dyspnoea [None]
  - Product lot number issue [None]
  - Swelling face [None]
  - Diplopia [None]
  - Nervous system disorder [None]

NARRATIVE: CASE EVENT DATE: 20200925
